FAERS Safety Report 14839830 (Version 2)
Quarter: 2018Q4

REPORT INFORMATION
  Report Type: Report from Study
  Country: US (occurrence: US)
  Receive Date: 20180503
  Receipt Date: 20181010
  Transmission Date: 20190204
  Serious: Yes (Hospitalization, Other)
  Sender: FDA-Public Use
  Company Number: US-ROCHE-2114529

PATIENT
  Age: 62 Year
  Sex: Female
  Weight: 70.37 kg

DRUGS (2)
  1. ESBRIET [Suspect]
     Active Substance: PIRFENIDONE
     Indication: BRONCHITIS CHRONIC
     Dosage: 3 CAPSULES, 3 TIMES DAILY
     Route: 048
     Dates: start: 201704, end: 20180311
  2. ESBRIET [Suspect]
     Active Substance: PIRFENIDONE
     Indication: IDIOPATHIC PULMONARY FIBROSIS
     Route: 048
     Dates: start: 2018

REACTIONS (7)
  - Intestinal perforation [Recovered/Resolved]
  - Malaise [Unknown]
  - Cholelithiasis [Unknown]
  - Internal haemorrhage [Unknown]
  - Skin abrasion [Unknown]
  - Intentional product use issue [Unknown]
  - Off label use [Unknown]

NARRATIVE: CASE EVENT DATE: 201803
